FAERS Safety Report 6896300-6 (Version None)
Quarter: 2010Q3

REPORT INFORMATION
  Report Type: 
  Country: None (occurrence: None)
  Receive Date: 20100802
  Receipt Date: 20100726
  Transmission Date: 20110219
  Serious: Yes (Other)
  Sender: FDA-Public Use
  Company Number: B0667950A

PATIENT
  Age: 30 Year
  Sex: Male

DRUGS (1)
  1. BUPROPION [Suspect]
     Route: 048

REACTIONS (10)
  - ANGIOEDEMA [None]
  - JOINT SWELLING [None]
  - LIMB DISCOMFORT [None]
  - LIP SWELLING [None]
  - OEDEMA PERIPHERAL [None]
  - PRURITUS [None]
  - RASH [None]
  - RASH MACULO-PAPULAR [None]
  - RASH PRURITIC [None]
  - SWOLLEN TONGUE [None]
